FAERS Safety Report 11774807 (Version 1)
Quarter: 2015Q4

REPORT INFORMATION
  Report Type: Spontaneous
  Country: US (occurrence: US)
  Receive Date: 20151124
  Receipt Date: 20151124
  Transmission Date: 20160304
  Serious: No
  Sender: FDA-Public Use
  Company Number: US-PURDUE-USA-2015-0127203

PATIENT
  Sex: Female

DRUGS (3)
  1. HYSINGLA ER [Suspect]
     Active Substance: HYDROCODONE BITARTRATE
     Indication: SPINAL COLUMN STENOSIS
     Dosage: 60 MG, Q24H
     Route: 048
     Dates: start: 201506
  2. AMITIZA [Concomitant]
     Active Substance: LUBIPROSTONE
     Indication: PRODUCT USED FOR UNKNOWN INDICATION
     Dosage: UNK UNK, Q24H
     Route: 048
  3. HYSINGLA ER [Suspect]
     Active Substance: HYDROCODONE BITARTRATE
     Indication: BACK DISORDER
     Dosage: 40 MG, BID
     Route: 048
     Dates: start: 201506

REACTIONS (5)
  - Drug effect decreased [Unknown]
  - Agitation [Unknown]
  - Medication residue present [Unknown]
  - Drug prescribing error [Unknown]
  - Pain [Unknown]
